FAERS Safety Report 5442100-3 (Version None)
Quarter: 2007Q3

REPORT INFORMATION
  Report Type: 
  Country: None (occurrence: None)
  Receive Date: 20070904
  Receipt Date: 20070822
  Transmission Date: 20080115
  Serious: Yes (Hospitalization)
  Sender: FDA-Public Use
  Company Number: FR-ROCHE-512948

PATIENT
  Age: 5 Year
  Sex: Female

DRUGS (3)
  1. CELLCEPT [Suspect]
     Route: 048
     Dates: end: 20070412
  2. PROGRAF [Suspect]
     Indication: DRUG USE FOR UNKNOWN INDICATION
     Route: 048
     Dates: start: 20050201, end: 20070626
  3. KARDEGIC [Concomitant]

REACTIONS (1)
  - APLASTIC ANAEMIA [None]
